FAERS Safety Report 8746590 (Version 2)
Quarter: 2012Q4

REPORT INFORMATION
  Report Type: 
  Country: BR (occurrence: BR)
  Receive Date: 20120827
  Receipt Date: 20120831
  Transmission Date: 20130627
  Serious: Yes (Other)
  Sender: FDA-Public Use
  Company Number: BR-SANOFI-AVENTIS-2012SA060694

PATIENT
  Age: 17 Year
  Sex: Male

DRUGS (1)
  1. ALLEGRA [Suspect]
     Indication: ITCHING
     Route: 065

REACTIONS (12)
  - Suicide attempt [Unknown]
  - Delirium [Unknown]
  - Psychotic disorder [Unknown]
  - Dyspnoea [Unknown]
  - Heart rate increased [Unknown]
  - Anxiety [Unknown]
  - Injury [Unknown]
  - Head injury [Unknown]
  - Injury [Unknown]
  - Headache [Unknown]
  - Insomnia [Unknown]
  - Throat tightness [Unknown]
